FAERS Safety Report 9681252 (Version 3)
Quarter: 2014Q2

REPORT INFORMATION
  Report Type: Spontaneous
  Country: FR (occurrence: FR)
  Receive Date: 20131111
  Receipt Date: 20140409
  Transmission Date: 20141212
  Serious: Yes (Hospitalization)
  Sender: FDA-Public Use
  Company Number: FR-B.I. PHARMACEUTICALS,INC./RIDGEFIELD-2013-FF-02652FF

PATIENT
  Age: 59 Year
  Sex: Male

DRUGS (5)
  1. PRADAXA [Suspect]
     Indication: PRODUCT USED FOR UNKNOWN INDICATION
     Dosage: 300 MG
     Route: 048
     Dates: start: 20130913
  2. KEPPRA [Concomitant]
     Dosage: 1000 MG
     Route: 048
     Dates: start: 20130221
  3. CRESTOR [Concomitant]
     Dosage: 10 MG
     Route: 048
     Dates: start: 20130221
  4. INEXIUM [Concomitant]
     Dosage: 20 MG
     Route: 048
     Dates: start: 20130221
  5. BISOPROLOL [Concomitant]
     Dosage: 10 MG
     Route: 065
     Dates: start: 20130913

REACTIONS (3)
  - Hepatocellular injury [Recovered/Resolved]
  - Coagulation factor V level decreased [Recovered/Resolved]
  - Blood bilirubin increased [Not Recovered/Not Resolved]
